FAERS Safety Report 9288947 (Version 1)
Quarter: 2013Q2

REPORT INFORMATION
  Report Type: Spontaneous
  Country: US (occurrence: US)
  Receive Date: 20130514
  Receipt Date: 20130514
  Transmission Date: 20140414
  Serious: No
  Sender: FDA-Public Use
  Company Number: US-ASTRAZENECA-2013SE30098

PATIENT
  Age: 95 Year
  Sex: Male

DRUGS (9)
  1. TENORMIN [Suspect]
     Route: 042
  2. ZESTRIL [Suspect]
     Route: 048
  3. BRILINTA [Suspect]
     Indication: STENT PLACEMENT
     Route: 048
     Dates: start: 20120707
  4. AIODORONE [Concomitant]
  5. MULTIVITAMINS [Concomitant]
  6. OCCUVITE [Concomitant]
  7. PROSCAR [Concomitant]
  8. TRAMADOL [Concomitant]
  9. MEDICINE FOR PROSTATE PROBLEMS [Concomitant]

REACTIONS (1)
  - Haemorrhage [Unknown]
